FAERS Safety Report 9158020 (Version 3)
Quarter: 2013Q4

REPORT INFORMATION
  Report Type: Report from Study
  Country: BR (occurrence: BR)
  Receive Date: 20130312
  Receipt Date: 20131017
  Transmission Date: 20140711
  Serious: Yes (Other)
  Sender: FDA-Public Use
  Company Number: BR-ROCHE-1199502

PATIENT
  Sex: Female
  Weight: 110 kg

DRUGS (13)
  1. MABTHERA [Suspect]
     Indication: RHEUMATOID ARTHRITIS
     Route: 065
     Dates: start: 2010
  2. MABTHERA [Suspect]
     Route: 065
     Dates: start: 20120525, end: 201205
  3. MABTHERA [Suspect]
     Route: 065
     Dates: start: 20120611
  4. METFORMIN [Concomitant]
  5. OMEPRAZOLE [Concomitant]
  6. ENALAPRIL [Concomitant]
  7. PURAN T4 [Concomitant]
  8. ACETYLSALICYLIC ACID [Concomitant]
  9. FOLIC ACID [Concomitant]
  10. METHOTREXATE [Concomitant]
  11. PREDNISONE [Concomitant]
  12. LEVEMIR [Concomitant]
  13. LISPRO INSULIN [Concomitant]

REACTIONS (1)
  - Diabetes mellitus [Recovered/Resolved]
